FAERS Safety Report 8604159-1 (Version None)
Quarter: 2012Q3

REPORT INFORMATION
  Report Type: 
  Country: None (occurrence: None)
  Receive Date: 20120806
  Receipt Date: 20120719
  Transmission Date: 20120928
  Serious: Yes (Hospitalization)
  Sender: FDA-Public Use
  Company Number: DSJ-2012-11750

PATIENT
  Age: 64 Year
  Sex: Male
  Weight: 74 kg

DRUGS (5)
  1. ALLOPURINOL [Concomitant]
  2. REZALTAS (OLMESARTAN MEDOXOMOL/AZELNIDIPINE) (TABLET) [Suspect]
     Dosage: 20MG/16MG (1 IN 1 D)
     Dates: end: 20120405
  3. OLMESARTAN MEDOXOMIL [Suspect]
     Indication: HYPERTENSION
     Dosage: 20 MG (20 MG, 1 IN 1 D), PER ORAL, 20 MG (20 MG, 1 IN 1 D), PER ORAL
     Route: 048
     Dates: start: 20120502
  4. OLMESARTAN MEDOXOMIL [Suspect]
     Indication: HYPERTENSION
     Dosage: 20 MG (20 MG, 1 IN 1 D), PER ORAL, 20 MG (20 MG, 1 IN 1 D), PER ORAL
     Route: 048
     Dates: end: 20120404
  5. COMELIAN (DILAZEP DIHYDROCHLORIDE) (DILAZEP DIHYDROCHLORIDE) [Concomitant]

REACTIONS (5)
  - DUODENAL ULCER [None]
  - ENTERITIS [None]
  - DIARRHOEA [None]
  - ABDOMINAL PAIN [None]
  - DUODENITIS [None]
